FAERS Safety Report 23604218 (Version 1)
Quarter: 2024Q1

REPORT INFORMATION
  Report Type: Spontaneous
  Country: US (occurrence: US)
  Receive Date: 20240307
  Receipt Date: 20240307
  Transmission Date: 20240409
  Serious: No
  Sender: FDA-Public Use
  Company Number: US-GSKCCFUS-Case-01948321_AE-108259

PATIENT
  Age: 25 Year
  Sex: Female

DRUGS (1)
  1. VALTREX [Suspect]
     Active Substance: VALACYCLOVIR HYDROCHLORIDE
     Indication: Cytomegalovirus infection
     Dosage: 4 G, BID

REACTIONS (2)
  - Exposure during pregnancy [Unknown]
  - Product use in unapproved indication [Unknown]
